FAERS Safety Report 13383371 (Version 1)
Quarter: 2017Q1

REPORT INFORMATION
  Report Type: Spontaneous
  Country: FR (occurrence: FR)
  Receive Date: 20170329
  Receipt Date: 20170329
  Transmission Date: 20170429
  Serious: Yes (Other)
  Sender: FDA-Public Use
  Company Number: FR-PFIZER INC-2017129704

PATIENT
  Age: 48 Year
  Sex: Female

DRUGS (7)
  1. PIASCLEDINE /00809501/ [Concomitant]
     Active Substance: AVOCADO OIL\SOYBEAN OIL
  2. ENDOXAN /00021101/ [Suspect]
     Active Substance: CYCLOPHOSPHAMIDE
     Dosage: UNK
     Route: 042
     Dates: start: 20160919
  3. CHONDROSULF [Concomitant]
     Active Substance: CHONDROITIN SULFATE (CHICKEN)
  4. HERCEPTIN [Suspect]
     Active Substance: TRASTUZUMAB
     Dosage: UNK
     Route: 042
     Dates: start: 20160919
  5. KENZEN [Concomitant]
     Active Substance: CANDESARTAN
  6. DOCETAXEL HOSPIRA [Suspect]
     Active Substance: DOCETAXEL
     Dosage: UNK
     Route: 042
     Dates: start: 20160919
  7. SALAZOPYRINE [Concomitant]
     Active Substance: SULFASALAZINE

REACTIONS (7)
  - Arthralgia [Unknown]
  - Asthenia [Unknown]
  - Paraesthesia [Unknown]
  - Mucosal inflammation [Recovered/Resolved]
  - Vulvovaginal dryness [Recovered/Resolved]
  - Nausea [Recovered/Resolved]
  - Muscular weakness [Recovered/Resolved]

NARRATIVE: CASE EVENT DATE: 20160919
